FAERS Safety Report 8218268-2 (Version None)
Quarter: 2012Q1

REPORT INFORMATION
  Report Type: 
  Country: None (occurrence: None)
  Receive Date: 20120319
  Receipt Date: 20120315
  Transmission Date: 20120608
  Serious: Yes (Hospitalization)
  Sender: FDA-Public Use
  Company Number: JP-ABBOTT-11P-087-0845244-00

PATIENT
  Sex: Male
  Weight: 71 kg

DRUGS (15)
  1. RHEUMATREX [Suspect]
     Indication: RHEUMATOID ARTHRITIS
     Dosage: 8 MG/WEEK
     Route: 048
     Dates: end: 20110406
  2. HUMIRA [Suspect]
     Indication: RHEUMATOID ARTHRITIS
     Route: 058
     Dates: start: 20101201, end: 20110704
  3. FAMOTIDINE [Concomitant]
     Indication: GASTRIC DISORDER
     Route: 048
     Dates: start: 20091207
  4. FAMOTIDINE [Concomitant]
     Indication: PROPHYLAXIS
  5. ALENDRONATE SODIUM [Concomitant]
     Indication: OSTEOPOROSIS PROPHYLAXIS
     Route: 048
     Dates: start: 20091207
  6. RHEUMATREX [Suspect]
     Dosage: 8 MG/WEEK
     Dates: start: 20110829
  7. PREDNISOLONE [Concomitant]
     Route: 048
     Dates: start: 20110810, end: 20110829
  8. PREDNISOLONE [Concomitant]
     Route: 048
     Dates: start: 20110829, end: 20110921
  9. FOLIC ACID [Concomitant]
     Indication: ADVERSE REACTION
  10. RHEUMATREX [Suspect]
     Dates: end: 20110720
  11. FOLIC ACID [Concomitant]
     Indication: PROPHYLAXIS
     Dosage: 5 MG/WEEK
     Route: 048
  12. PREDNISOLONE [Concomitant]
     Indication: RHEUMATOID ARTHRITIS
     Route: 048
     Dates: start: 20091207, end: 20110704
  13. PREDNISOLONE [Concomitant]
     Route: 048
     Dates: start: 20110704, end: 20110810
  14. PREDNISOLONE [Concomitant]
     Dosage: 6 TO 7 MG/DAY
     Route: 048
     Dates: start: 20110829, end: 20110921
  15. RHEUMATREX [Suspect]
     Dosage: 10 MG/WEEK
     Dates: start: 20110406, end: 20110704

REACTIONS (10)
  - MYALGIA [None]
  - ARTHRITIS VIRAL [None]
  - LUPUS-LIKE SYNDROME [None]
  - OEDEMA PERIPHERAL [None]
  - ARTHRALGIA [None]
  - WHITE BLOOD CELL COUNT INCREASED [None]
  - HEPATIC FUNCTION ABNORMAL [None]
  - C-REACTIVE PROTEIN INCREASED [None]
  - IMMUNE COMPLEX LEVEL INCREASED [None]
  - VIRAL INFECTION [None]
